FAERS Safety Report 25506612 (Version 2)
Quarter: 2025Q3

REPORT INFORMATION
  Report Type: Spontaneous
  Country: US (occurrence: US)
  Receive Date: 20250702
  Receipt Date: 20250708
  Transmission Date: 20251021
  Serious: Yes (Hospitalization, Other)
  Sender: B. BRAUN MEDICAL INC.
  Company Number: US-B. Braun Medical Inc.-US-BBM-202502541

PATIENT
  Age: 72 Year
  Sex: Male

DRUGS (1)
  1. SODIUM CHLORIDE [Suspect]
     Active Substance: SODIUM CHLORIDE
     Indication: Wound treatment

REACTIONS (2)
  - Suspected transmission of an infectious agent via product [Unknown]
  - Product storage error [Unknown]
